FAERS Safety Report 4698839-0 (Version None)
Quarter: 2005Q2

REPORT INFORMATION
  Report Type: 
  Country: None (occurrence: None)
  Receive Date: 20050622
  Receipt Date: 20050613
  Transmission Date: 20051028
  Serious: Yes (Other)
  Sender: FDA-Public Use
  Company Number: GXBR2005US00966

PATIENT
  Age: 53 Year
  Sex: Male
  Weight: 198 kg

DRUGS (4)
  1. RIBAVIRIN [Suspect]
     Indication: HEPATITIS C
     Dosage: 1200 MG, QD, ORAL
     Route: 048
     Dates: start: 20050506, end: 20050520
  2. PEG-INTRON [Suspect]
     Indication: HEPATITIS C
     Dosage: 150 MG UG, QW, SUBCUTANEOUS
     Route: 058
     Dates: start: 20050506, end: 20050520
  3. FLEXERIL [Concomitant]
  4. HYDROCODONE BITARTRATE [Concomitant]

REACTIONS (20)
  - ABNORMAL BEHAVIOUR [None]
  - ANGER [None]
  - ANXIETY [None]
  - BLOOD PRESSURE INCREASED [None]
  - CHEST PAIN [None]
  - CHILLS [None]
  - CONVULSION [None]
  - DIZZINESS [None]
  - DYSPNOEA [None]
  - FEELING ABNORMAL [None]
  - HEART RATE INCREASED [None]
  - HYPERVENTILATION [None]
  - HYPOAESTHESIA [None]
  - LOSS OF CONSCIOUSNESS [None]
  - MALAISE [None]
  - PAIN IN EXTREMITY [None]
  - PALPITATIONS [None]
  - PRURITUS [None]
  - PYREXIA [None]
  - VISUAL DISTURBANCE [None]
